FAERS Safety Report 12947647 (Version 1)
Quarter: 2016Q4

REPORT INFORMATION
  Report Type: Spontaneous
  Country: US (occurrence: US)
  Receive Date: 20161116
  Receipt Date: 20161116
  Transmission Date: 20170207
  Serious: Yes (Other)
  Sender: FDA-Public Use
  Company Number: US-PFIZER INC-2016523638

PATIENT
  Age: 28 Year
  Sex: Male

DRUGS (5)
  1. SODIUM PHOSPHATE [Suspect]
     Active Substance: SODIUM PHOSPHATE
     Indication: HYPOPHOSPHATAEMIA
     Dosage: UNK
  2. POTASSIUM PHOSPHATE /00493501/ [Suspect]
     Active Substance: POTASSIUM PHOSPHATE, DIBASIC
     Indication: HYPOPHOSPHATAEMIA
     Dosage: UNK
  3. PREDNISOLONE. [Concomitant]
     Active Substance: PREDNISOLONE
     Indication: MENTAL DISORDER
     Dosage: UNK
  4. FOLATE [Concomitant]
     Active Substance: FOLATE SODIUM
     Indication: WERNICKE-KORSAKOFF SYNDROME
     Dosage: UNK (HIGH DOSE)
  5. THIAMINE. [Concomitant]
     Active Substance: THIAMINE
     Indication: WERNICKE-KORSAKOFF SYNDROME
     Dosage: UNK (HIGH DOSE)

REACTIONS (1)
  - Mental impairment [Recovering/Resolving]
